FAERS Safety Report 5753675-9 (Version None)
Quarter: 2008Q2

REPORT INFORMATION
  Report Type: 
  Country: None (occurrence: None)
  Receive Date: 20080527
  Receipt Date: 20080514
  Transmission Date: 20081010
  Serious: Yes (Hospitalization)
  Sender: FDA-Public Use
  Company Number: 163-C5013-08050804

PATIENT
  Age: 61 Year
  Sex: Male
  Weight: 95.5 kg

DRUGS (10)
  1. CC-5013 (LENALIDOMIDE) (5 MILLIGRAM, CAPSULES) [Suspect]
     Indication: CHRONIC LYMPHOCYTIC LEUKAEMIA
     Dosage: 5 MG, 1 IN 1 D, ORAL
     Route: 048
     Dates: start: 20080313, end: 20080511
  2. PREDNISONE TAB [Concomitant]
  3. ACYCLOVIR [Concomitant]
  4. LANSOPRAZOLE [Concomitant]
  5. LEVOFLOXACIN [Concomitant]
  6. LEXAPRO [Concomitant]
  7. BACTRIM DS [Concomitant]
  8. TAMSULOSIN HYDROCHLORIDE (TAMSULOSIN HYDROCHLORIDE) [Concomitant]
  9. ALLOPURINOL [Concomitant]
  10. TRIMETHOPRIM SULFA (SULFONAMIDES AND TRIMETHOPRIM) [Concomitant]

REACTIONS (9)
  - ABDOMINAL DISCOMFORT [None]
  - BLOOD CALCIUM DECREASED [None]
  - BLOOD MAGNESIUM DECREASED [None]
  - DYSPEPSIA [None]
  - PLATELET COUNT DECREASED [None]
  - RETROPERITONEAL LYMPHADENOPATHY [None]
  - TUMOUR FLARE [None]
  - WHEEZING [None]
  - WHITE BLOOD CELL COUNT INCREASED [None]
